FAERS Safety Report 15387233 (Version 1)
Quarter: 2018Q3

REPORT INFORMATION
  Report Type: Spontaneous
  Country: US (occurrence: US)
  Receive Date: 20180914
  Receipt Date: 20180914
  Transmission Date: 20181010
  Serious: No
  Sender: FDA-Public Use
  Company Number: US-SA-2018SA254071

PATIENT
  Sex: Female

DRUGS (3)
  1. METHOTREXATE. [Suspect]
     Active Substance: METHOTREXATE
     Dosage: UNK UNK, UNK
     Route: 048
     Dates: start: 2003, end: 2013
  2. ARAVA [Suspect]
     Active Substance: LEFLUNOMIDE
     Dosage: UNK UNK, UNK
     Route: 065
     Dates: start: 200311, end: 201202
  3. METHOTREXATE. [Suspect]
     Active Substance: METHOTREXATE
     Dosage: INJECTION
     Dates: start: 2013

REACTIONS (1)
  - Drug ineffective [Unknown]
